FAERS Safety Report 10048358 (Version 1)
Quarter: 2014Q1

REPORT INFORMATION
  Report Type: Spontaneous
  Country: FR (occurrence: FR)
  Receive Date: 20140331
  Receipt Date: 20140331
  Transmission Date: 20141002
  Serious: Yes (Hospitalization)
  Sender: FDA-Public Use
  Company Number: FR-GLAXOSMITHKLINE-B0979795A

PATIENT
  Age: 56 Year
  Sex: Male

DRUGS (1)
  1. VOTRIENT [Suspect]
     Indication: RENAL CANCER
     Route: 048
     Dates: start: 20131126, end: 20140226

REACTIONS (4)
  - Hepatocellular injury [Recovering/Resolving]
  - Jaundice [Recovering/Resolving]
  - Cholestasis [Recovering/Resolving]
  - Asthenia [Unknown]
